FAERS Safety Report 8382864-2 (Version None)
Quarter: 2012Q2

REPORT INFORMATION
  Report Type: 
  Country: None (occurrence: None)
  Receive Date: 20120524
  Receipt Date: 20120516
  Transmission Date: 20120825
  Serious: Yes (Hospitalization)
  Sender: FDA-Public Use
  Company Number: FR-SANOFI-AVENTIS-2012SA034785

PATIENT
  Age: 58 Year
  Sex: Female

DRUGS (4)
  1. FLECTOR [Concomitant]
     Indication: RHEUMATOID ARTHRITIS
     Dosage: DOSE:1 UNIT(S)
     Route: 003
  2. ARAVA [Suspect]
     Indication: RHEUMATOID ARTHRITIS
     Route: 048
  3. NEXIUM [Concomitant]
     Indication: RHEUMATOID ARTHRITIS
     Route: 048
     Dates: end: 20120401
  4. VOLTAREN [Concomitant]
     Indication: RHEUMATOID ARTHRITIS
     Route: 048
     Dates: end: 20120401

REACTIONS (3)
  - OEDEMA [None]
  - PHOTOSENSITIVITY REACTION [None]
  - ERYTHEMA [None]
